FAERS Safety Report 8408687 (Version 2)
Quarter: 2013Q2

REPORT INFORMATION
  Report Type: Spontaneous
  Country: US (occurrence: None)
  Receive Date: 20111227
  Receipt Date: 20120426
  Transmission Date: 20140414
  Serious: No
  Sender: FDA-Public Use
  Company Number: PHEH2011US07179

PATIENT
  Age: 48 Year
  Sex: Female
  Weight: 90.2 kg

DRUGS (1)
  1. GILENYA [Suspect]
     Indication: MULTIPLE SCLEROSIS
     Dosage: 0.5 MG, QD, ORAL
     Route: 048
     Dates: start: 20111005

REACTIONS (6)
  - PAIN [None]
  - VISION BLURRED [None]
  - ARTHRALGIA [None]
  - VERTIGO [None]
  - Nasopharyngitis [None]
  - Sinusitis [None]
